FAERS Safety Report 5652560-0 (Version None)
Quarter: 2008Q1

REPORT INFORMATION
  Report Type: 
  Country: None (occurrence: None)
  Receive Date: 20080306
  Receipt Date: 20080227
  Transmission Date: 20080703
  Serious: Yes (Life-Threatening)
  Sender: FDA-Public Use
  Company Number: JP-BRISTOL-MYERS SQUIBB COMPANY-14045157

PATIENT
  Age: 4 Decade
  Sex: Male

DRUGS (4)
  1. ABILIFY [Suspect]
     Route: 048
  2. TRYPTANOL [Suspect]
  3. ROHYPNOL [Suspect]
  4. LEXOTAN [Suspect]
     Route: 048

REACTIONS (1)
  - DRUG TOXICITY [None]
